FAERS Safety Report 7999312-4 (Version None)
Quarter: 2011Q4

REPORT INFORMATION
  Report Type: 
  Country: None (occurrence: None)
  Receive Date: 20111221
  Receipt Date: 20111215
  Transmission Date: 20120403
  Serious: Yes (Death, Hospitalization)
  Sender: FDA-Public Use
  Company Number: US-CELGENEUS-163-21880-11080042

PATIENT
  Sex: Male

DRUGS (10)
  1. SINGULAIR [Concomitant]
     Route: 065
  2. DEXAMETHASONE [Concomitant]
     Route: 065
  3. REVLIMID [Suspect]
     Indication: MANTLE CELL LYMPHOMA
     Dosage: 25 MILLIGRAM
     Route: 048
     Dates: start: 20110516, end: 20110525
  4. REVLIMID [Suspect]
     Dosage: 10 MILLIGRAM
     Route: 048
     Dates: start: 20110612, end: 20110718
  5. METOPROLOL TARTRATE [Concomitant]
     Route: 065
  6. XANAX [Concomitant]
     Route: 065
  7. ZOCOR [Concomitant]
     Route: 065
  8. CITALOPRAM HYDROBROMIDE [Concomitant]
     Route: 065
  9. COUMADIN [Concomitant]
     Route: 065
  10. AMBIEN [Concomitant]
     Route: 065

REACTIONS (5)
  - MANTLE CELL LYMPHOMA [None]
  - INFECTION [None]
  - HYPOTENSION [None]
  - PANCYTOPENIA [None]
  - SEPSIS [None]
